FAERS Safety Report 23118978 (Version 1)
Quarter: 2023Q4

REPORT INFORMATION
  Report Type: Other
  Country: JP (occurrence: JP)
  Receive Date: 20231028
  Receipt Date: 20231028
  Transmission Date: 20240110
  Serious: Yes (Other)
  Sender: FDA-Public Use
  Company Number: JP-CHUGAI-2023037614

PATIENT
  Age: 8 Decade
  Sex: Male

DRUGS (1)
  1. ACTEMRA [Suspect]
     Active Substance: TOCILIZUMAB
     Indication: Rheumatic disorder
     Dosage: UNK
     Route: 065

REACTIONS (3)
  - Bladder perforation [Recovered/Resolved]
  - Colonic abscess [Recovered/Resolved]
  - Diverticulitis [Recovered/Resolved]
